FAERS Safety Report 4737861-2 (Version None)
Quarter: 2005Q3

REPORT INFORMATION
  Report Type: 
  Country: None (occurrence: None)
  Receive Date: 20050809
  Receipt Date: 20050726
  Transmission Date: 20060218
  Serious: Yes (Life-Threatening, Other)
  Sender: FDA-Public Use
  Company Number: US-AMGEN-US144635

PATIENT
  Sex: Female

DRUGS (1)
  1. ENBREL [Suspect]
     Indication: SPONDYLOARTHROPATHY
     Route: 058
     Dates: start: 20050718, end: 20050718

REACTIONS (6)
  - HYPERSENSITIVITY [None]
  - LOCAL SWELLING [None]
  - OROPHARYNGEAL SWELLING [None]
  - SWELLING FACE [None]
  - URTICARIA [None]
  - WHEEZING [None]
